FAERS Safety Report 7399595-8 (Version None)
Quarter: 2011Q2

REPORT INFORMATION
  Report Type: 
  Country: None (occurrence: None)
  Receive Date: 20110407
  Receipt Date: 20101005
  Transmission Date: 20111010
  Serious: Yes (Hospitalization, Disabling)
  Sender: FDA-Public Use
  Company Number: US-BAYER-201034366NA

PATIENT
  Sex: Female
  Weight: 58.05 kg

DRUGS (9)
  1. YAZ [Suspect]
     Indication: PREMENSTRUAL SYNDROME
     Dosage: UNK
     Route: 048
     Dates: start: 20071128, end: 20080321
  2. ACCUTANE [Concomitant]
     Dosage: 40 MG, BID
  3. VICODIN [Concomitant]
     Indication: PAIN
  4. YASMIN [Suspect]
     Route: 048
     Dates: start: 20060201, end: 20060401
  5. YASMIN [Suspect]
     Indication: ACNE
     Dosage: UNK
     Route: 048
     Dates: start: 20050407, end: 20051001
  6. ZITHROMAX [Concomitant]
     Indication: CERVICITIS
  7. YAZ [Suspect]
     Indication: ACNE
  8. YASMIN [Suspect]
     Indication: PREMENSTRUAL SYNDROME
     Route: 048
     Dates: start: 20051201, end: 20060101
  9. CIPRO [Concomitant]
     Indication: CERVICITIS

REACTIONS (5)
  - PAIN IN EXTREMITY [None]
  - PAIN [None]
  - SKIN DISCOLOURATION [None]
  - SWELLING [None]
  - DEEP VEIN THROMBOSIS [None]
